FAERS Safety Report 11904521 (Version 1)
Quarter: 2016Q1

REPORT INFORMATION
  Report Type: Spontaneous
  Country: FR (occurrence: FR)
  Receive Date: 20160111
  Receipt Date: 20160111
  Transmission Date: 20160526
  Serious: Yes (Life-Threatening)
  Sender: FDA-Public Use
  Company Number: PHHY2015FR152657

PATIENT
  Age: 73 Year
  Sex: Male
  Weight: 70 kg

DRUGS (3)
  1. SOLUPRED [Concomitant]
     Active Substance: PREDNISOLONE
     Indication: TONSILLITIS
     Dosage: 2 DF, QD
     Route: 065
     Dates: start: 20151104
  2. AMOXICILLIN SANDOZ [Suspect]
     Active Substance: AMOXICILLIN
     Indication: TONSILLITIS
     Dosage: 2 G, TID
     Route: 048
     Dates: start: 20151104, end: 20151108
  3. ULTRA LEVURE [Suspect]
     Active Substance: SACCHAROMYCES CEREVISIAE
     Indication: PRODUCT USED FOR UNKNOWN INDICATION
     Dosage: 2 DF, QD
     Route: 065

REACTIONS (5)
  - Faeces pale [Recovered/Resolved]
  - Medication error [Recovered/Resolved]
  - Wound [Recovered/Resolved]
  - Hypersensitivity [Recovered/Resolved]
  - Overdose [Recovered/Resolved]

NARRATIVE: CASE EVENT DATE: 20151108
